FAERS Safety Report 19399764 (Version 1)
Quarter: 2021Q2

REPORT INFORMATION
  Report Type: Spontaneous
  Country: IT (occurrence: IT)
  Receive Date: 20210610
  Receipt Date: 20210610
  Transmission Date: 20210717
  Serious: Yes (Other)
  Sender: FDA-Public Use
  Company Number: IT-MYLANLABS-2021M1033851

PATIENT
  Sex: Female

DRUGS (6)
  1. ETOPOSIDE. [Suspect]
     Active Substance: ETOPOSIDE
     Indication: ADRENOCORTICAL CARCINOMA
     Dosage: 6 CYCLES
  2. MITOTANE [Concomitant]
     Active Substance: MITOTANE
     Dosage: 4 G, DAILY
  3. DOXORUBICIN [Suspect]
     Active Substance: DOXORUBICIN
     Indication: ADRENOCORTICAL CARCINOMA
     Dosage: 6 CYCLES
  4. CISPLATIN. [Suspect]
     Active Substance: CISPLATIN
     Indication: ADRENOCORTICAL CARCINOMA
     Dosage: 6 CYCLES
  5. MITOTANE [Concomitant]
     Active Substance: MITOTANE
     Indication: ADRENOCORTICAL CARCINOMA
     Dosage: 2 G, DAILY
  6. MITOTANE [Concomitant]
     Active Substance: MITOTANE
     Dosage: 4 G, DAILY

REACTIONS (4)
  - Anaemia [Unknown]
  - Vomiting [Unknown]
  - Leukopenia [Unknown]
  - Nausea [Unknown]
